FAERS Safety Report 8257890-4 (Version None)
Quarter: 2012Q2

REPORT INFORMATION
  Report Type: 
  Country: None (occurrence: None)
  Receive Date: 20120404
  Receipt Date: 20120402
  Transmission Date: 20120825
  Serious: Yes (Other)
  Sender: FDA-Public Use
  Company Number: US-PFIZER INC-2012083448

PATIENT
  Sex: Male
  Weight: 81.6 kg

DRUGS (12)
  1. CYMBALTA [Suspect]
     Indication: DEPRESSION
  2. COGENTIN [Concomitant]
     Dosage: 0.5 MG, 3X/DAY
  3. LAMICTAL [Concomitant]
     Dosage: UNK
  4. CHANTIX [Suspect]
     Dosage: 0.5 MG, UNK
     Dates: start: 20120301
  5. OXYCODONE [Concomitant]
     Indication: PAIN
     Dosage: 10 MG, DAILY
  6. ABILIFY [Suspect]
     Indication: DEPRESSION
  7. ZANAFLEX [Concomitant]
     Indication: MUSCLE SPASMS
     Dosage: 4 MG, 2X/DAY
     Dates: start: 20110101
  8. CHANTIX [Suspect]
     Indication: SMOKING CESSATION THERAPY
     Dosage: 0.5 MG, DAILY
     Dates: start: 20120316, end: 20120301
  9. CYMBALTA [Suspect]
     Indication: PAIN
     Dosage: 30 MG, 2X/DAY
     Dates: start: 20111201
  10. ABILIFY [Suspect]
     Indication: PAIN
     Dosage: 15 MG, DAILY
     Dates: start: 20111201
  11. DILANTIN [Concomitant]
     Dosage: 80 MG, DAILY
  12. BENTYL [Concomitant]
     Indication: PAIN
     Dosage: UNK

REACTIONS (1)
  - DEPRESSION [None]
